FAERS Safety Report 9055028 (Version 2)
Quarter: 2013Q1

REPORT INFORMATION
  Report Type: Spontaneous
  Country: FR (occurrence: FR)
  Receive Date: 20130206
  Receipt Date: 20130318
  Transmission Date: 20140127
  Serious: Yes (Death, Hospitalization)
  Sender: FDA-Public Use
  Company Number: FR-ROCHE-1187965

PATIENT
  Age: 68 Year
  Sex: Male

DRUGS (9)
  1. MABTHERA [Suspect]
     Indication: B-CELL LYMPHOMA
     Route: 042
     Dates: start: 20070605, end: 20080128
  2. MABTHERA [Suspect]
     Dosage: 2 CYCLES
     Route: 065
     Dates: start: 200310, end: 200312
  3. MABTHERA [Suspect]
     Dosage: 6 CYCLES
     Route: 065
     Dates: start: 200403, end: 200407
  4. MABTHERA [Suspect]
     Dosage: 6 CYCLES
     Route: 065
     Dates: start: 200706, end: 200712
  5. MABTHERA [Suspect]
     Dosage: 1 INFUSION
     Route: 065
     Dates: start: 20080128, end: 20080128
  6. ZELITREX [Concomitant]
     Route: 065
     Dates: start: 20080128
  7. BACTRIM FORTE [Concomitant]
     Route: 065
     Dates: start: 20080128
  8. NEORECORMON [Concomitant]
     Dosage: 30000 IU WEEKLY
     Route: 065
     Dates: start: 20080128
  9. FLUDARABINE [Concomitant]
     Route: 065
     Dates: start: 200706, end: 200712

REACTIONS (3)
  - Septic shock [Fatal]
  - Multi-organ failure [Fatal]
  - Cardio-respiratory arrest [Fatal]
